FAERS Safety Report 5120962-7 (Version None)
Quarter: 2006Q4

REPORT INFORMATION
  Report Type: 
  Country: None (occurrence: None)
  Receive Date: 20061005
  Receipt Date: 20060928
  Transmission Date: 20070319
  Serious: Yes (Hospitalization)
  Sender: FDA-Public Use
  Company Number: DE-ROCHE-465295

PATIENT
  Age: 67 Year
  Sex: Male
  Weight: 70 kg

DRUGS (3)
  1. CAPECITABINE [Suspect]
     Dosage: DOSE REPORTED AS   1000-U-15000/D
     Route: 065
     Dates: start: 20050225, end: 20050826
  2. CETUXIMAB [Suspect]
     Route: 065
     Dates: start: 20050225, end: 20050826
  3. IRINOTECAN HCL [Suspect]
     Route: 065
     Dates: start: 20050225, end: 20050812

REACTIONS (4)
  - ACUTE PRERENAL FAILURE [None]
  - COLITIS [None]
  - DIARRHOEA [None]
  - SUBILEUS [None]
